FAERS Safety Report 8785222 (Version 1)
Quarter: 2012Q4

REPORT INFORMATION
  Report Type: 
  Country: AU (occurrence: AU)
  Receive Date: 20120914
  Receipt Date: 20120914
  Transmission Date: 20130627
  Serious: No
  Sender: FDA-Public Use
  Company Number: AU-JNJFOC-20120900844

PATIENT
  Sex: Male

DRUGS (1)
  1. DUROGESIC [Suspect]
     Indication: PRODUCT USED FOR UNKNOWN INDICATION
     Route: 062

REACTIONS (4)
  - Product quality issue [Unknown]
  - Hyperhidrosis [Unknown]
  - Wrong technique in drug usage process [Unknown]
  - Product adhesion issue [Unknown]
